FAERS Safety Report 10833599 (Version 1)
Quarter: 2015Q1

REPORT INFORMATION
  Report Type: Spontaneous
  Country: US (occurrence: US)
  Receive Date: 20150219
  Receipt Date: 20150219
  Transmission Date: 20150721
  Serious: No
  Sender: FDA-Public Use
  Company Number: US-SHIRE-US201501435

PATIENT
  Age: 49 Year
  Sex: Male
  Weight: 99.77 kg

DRUGS (4)
  1. WELLBUTRIN [Suspect]
     Active Substance: BUPROPION HYDROCHLORIDE
     Indication: DEPRESSION
     Dosage: 150 MG, 1X/DAY:QD
     Route: 048
     Dates: start: 201502
  2. LATUDA [Concomitant]
     Active Substance: LURASIDONE HYDROCHLORIDE
     Indication: PRODUCT USED FOR UNKNOWN INDICATION
     Dosage: UNK, UNKNOWN
     Route: 065
  3. DEXILANT [Concomitant]
     Active Substance: DEXLANSOPRAZOLE
     Indication: PRECANCEROUS MUCOSAL LESION
     Dosage: 60 MG, 1X/DAY:QD
     Route: 048
     Dates: start: 2010
  4. VYVANSE [Suspect]
     Active Substance: LISDEXAMFETAMINE DIMESYLATE
     Indication: ATTENTION DEFICIT/HYPERACTIVITY DISORDER
     Dosage: 60 MG, 1X/DAY:QD
     Route: 048
     Dates: start: 2011

REACTIONS (7)
  - Anorgasmia [Not Recovered/Not Resolved]
  - Disturbance in sexual arousal [Not Recovered/Not Resolved]
  - Restlessness [Unknown]
  - Sexual dysfunction [Not Recovered/Not Resolved]
  - Testicular disorder [Not Recovered/Not Resolved]
  - Insomnia [Unknown]
  - Excessive masturbation [Not Recovered/Not Resolved]

NARRATIVE: CASE EVENT DATE: 2015
